FAERS Safety Report 4296908-0 (Version None)
Quarter: 2004Q1

REPORT INFORMATION
  Report Type: 
  Country: None (occurrence: None)
  Receive Date: 20040213
  Receipt Date: 20040209
  Transmission Date: 20041129
  Serious: Yes (Hospitalization)
  Sender: FDA-Public Use
  Company Number: UKP04000044

PATIENT
  Age: 86 Year
  Sex: Male

DRUGS (7)
  1. ACTONEL [Suspect]
     Dosage: 35MG, 1/WEEK, ORAL
     Route: 048
  2. ACETYLSALICYLIC ACID SRT [Suspect]
     Dosage: 75 MG, ORAL
     Route: 048
     Dates: end: 20040120
  3. PREDNISOLONE [Suspect]
     Dosage: 2.5 MG, 3/DAY, ORAL
     Route: 048
  4. GLIMEPIRIDE [Concomitant]
  5. FUROSEMIDE [Concomitant]
  6. INSULIN GLARGINE (INSULIN GLARGINE) [Concomitant]
  7. PARACETAMOL [Concomitant]

REACTIONS (2)
  - ANAEMIA [None]
  - MELAENA [None]
